FAERS Safety Report 5469540-0 (Version None)
Quarter: 2007Q3

REPORT INFORMATION
  Report Type: 
  Country: None (occurrence: None)
  Receive Date: 20070927
  Receipt Date: 20070921
  Transmission Date: 20080115
  Serious: Yes (Hospitalization)
  Sender: FDA-Public Use
  Company Number: B0488510A

PATIENT
  Sex: Female
  Weight: 74 kg

DRUGS (1)
  1. ROSIGLITAZONE [Suspect]
     Dates: start: 20030401

REACTIONS (2)
  - DYSPNOEA [None]
  - ENDOCARDITIS [None]
